FAERS Safety Report 5170628-2 (Version None)
Quarter: 2006Q4

REPORT INFORMATION
  Report Type: 
  Country: None (occurrence: None)
  Receive Date: 20061205
  Receipt Date: 20061120
  Transmission Date: 20070319
  Serious: Yes (Other)
  Sender: FDA-Public Use
  Company Number: 2006144584

PATIENT
  Age: 59 Year
  Sex: Female

DRUGS (2)
  1. EPIRUBICIN [Suspect]
     Indication: BREAST CANCER
     Dosage: 25 MG MG/M*2 (WEEKLY)
  2. DOCETAXEL               (DOCETAXEL) [Suspect]
     Indication: BREAST CANCER
     Dosage: 25 MG/M*2 (CYCLICAL)

REACTIONS (4)
  - HEPATIC FUNCTION ABNORMAL [None]
  - INTERSTITIAL LUNG DISEASE [None]
  - VASCULITIS [None]
  - WHITE BLOOD CELL COUNT DECREASED [None]
